FAERS Safety Report 4554441-2 (Version None)
Quarter: 2004Q4

REPORT INFORMATION
  Report Type: 
  Country: None (occurrence: None)
  Receive Date: 20041227
  Receipt Date: 20041015
  Transmission Date: 20050328
  Serious: Yes (Hospitalization)
  Sender: FDA-Public Use
  Company Number: 04P-163-0251790-00

PATIENT
  Sex: Female
  Weight: 54.4316 kg

DRUGS (4)
  1. HUMIRA [Suspect]
     Indication: RHEUMATOID ARTHRITIS
     Dosage: 40 MG, 1 IN 2 WK, SUBCUTANEOUS
     Route: 058
     Dates: end: 20040101
  2. HUMIRA [Suspect]
     Indication: RHEUMATOID ARTHRITIS
     Dosage: 40 MG, 1 IN 2 WK, SUBCUTANEOUS
     Route: 058
     Dates: start: 20030101
  3. ACETAMINOPHEN W/ PROPOXYPHENE HCL [Concomitant]
  4. LANSOPRAZOLE [Concomitant]

REACTIONS (4)
  - BLADDER DIVERTICULUM [None]
  - BLADDER MASS [None]
  - CYSTITIS [None]
  - URINARY TRACT INFECTION [None]
